FAERS Safety Report 21553690 (Version 1)
Quarter: 2022Q4

REPORT INFORMATION
  Report Type: Report from Study
  Country: JP (occurrence: JP)
  Receive Date: 20221104
  Receipt Date: 20221104
  Transmission Date: 20230112
  Serious: Yes (Hospitalization)
  Sender: FDA-Public Use
  Company Number: JP-UCBJ-CD202211173UCBPHAPROD

PATIENT
  Sex: Female

DRUGS (1)
  1. CIMZIA [Suspect]
     Active Substance: CERTOLIZUMAB PEGOL
     Indication: Psoriasis
     Route: 058
     Dates: start: 20210305, end: 20220218

REACTIONS (3)
  - Benign mediastinal neoplasm [Recovered/Resolved]
  - Infectious pleural effusion [Recovered/Resolved]
  - Tumour excision [Recovered/Resolved]

NARRATIVE: CASE EVENT DATE: 20220301
